FAERS Safety Report 9308854 (Version 1)
Quarter: 2013Q2

REPORT INFORMATION
  Report Type: Spontaneous
  Country: CA (occurrence: CA)
  Receive Date: 20130524
  Receipt Date: 20130524
  Transmission Date: 20140414
  Serious: Yes (Other)
  Sender: FDA-Public Use
  Company Number: CA-ASTRAZENECA-2013SE34931

PATIENT
  Age: 62 Year
  Sex: Male
  Weight: 83.9 kg

DRUGS (12)
  1. BRILINTA [Suspect]
     Indication: PROPHYLAXIS
     Route: 048
     Dates: start: 20130416, end: 20130419
  2. ASA [Concomitant]
  3. RAMIPRIL [Concomitant]
  4. ROSUVASTATIN [Concomitant]
  5. VENLAFAXINE [Concomitant]
  6. TAMSULOSIN [Concomitant]
  7. BISOPROLOL [Concomitant]
  8. METFORMIN [Concomitant]
  9. REPAGLINIDE [Concomitant]
  10. GLUCOSAMINE [Concomitant]
  11. OMEGA 3 [Concomitant]
  12. LEVOTHYROXINE [Concomitant]

REACTIONS (2)
  - Rash generalised [Recovering/Resolving]
  - Pruritus [Not Recovered/Not Resolved]
